FAERS Safety Report 4517084-2 (Version None)
Quarter: 2004Q4

REPORT INFORMATION
  Report Type: 
  Country: None (occurrence: None)
  Receive Date: 20041202
  Receipt Date: 20041122
  Transmission Date: 20050328
  Serious: Yes (Hospitalization)
  Sender: FDA-Public Use
  Company Number: US-ABBOTT-04P-163-0281753-00

PATIENT
  Sex: Female
  Weight: 65.83 kg

DRUGS (11)
  1. DEPAKOTE [Suspect]
     Indication: SUICIDE ATTEMPT
     Route: 048
     Dates: start: 20041021, end: 20041021
  2. DEPAKOTE [Suspect]
     Indication: CONVULSION
  3. LEXAPRO FILM-COATED TABLETS [Suspect]
     Indication: SUICIDE ATTEMPT
     Route: 048
     Dates: start: 20041021, end: 20041021
  4. CLOPIDOGREL BISULFATE [Suspect]
     Indication: SUICIDE ATTEMPT
     Route: 048
     Dates: start: 20041021, end: 20041021
  5. CLOPIDOGREL BISULFATE [Suspect]
     Indication: CHEST PAIN
     Route: 048
     Dates: start: 20020101, end: 20041021
  6. CLOPIDOGREL BISULFATE [Suspect]
     Indication: ISCHAEMIC STROKE
     Dates: start: 20041001
  7. ZOLPIDEM TARTRATE [Suspect]
     Indication: SUICIDE ATTEMPT
     Route: 048
     Dates: start: 20041021, end: 20041021
  8. ZOLPIDEM TARTRATE [Suspect]
     Indication: INSOMNIA
  9. ALPRAZOLAM [Suspect]
     Indication: SUICIDE ATTEMPT
     Route: 048
     Dates: start: 20041021, end: 20041021
  10. CLONAZEPAM [Suspect]
     Indication: SUICIDE ATTEMPT
     Route: 048
     Dates: start: 20041021, end: 20041021
  11. ACETYLSALICYLIC ACID [Concomitant]
     Indication: DRUG USE FOR UNKNOWN INDICATION
     Route: 048

REACTIONS (3)
  - DEPRESSION SUICIDAL [None]
  - LOSS OF CONSCIOUSNESS [None]
  - MULTIPLE DRUG OVERDOSE INTENTIONAL [None]
